FAERS Safety Report 10249439 (Version 1)
Quarter: 2014Q2

REPORT INFORMATION
  Report Type: Spontaneous
  Country: FR (occurrence: FR)
  Receive Date: 20140620
  Receipt Date: 20140620
  Transmission Date: 20141212
  Serious: Yes (Hospitalization)
  Sender: FDA-Public Use
  Company Number: PHHY2014FR075308

PATIENT
  Age: 72 Year
  Sex: Male

DRUGS (2)
  1. AMIODARONE [Suspect]
     Dosage: 200 MG/DAY
  2. DABIGATRAN ETEXILATE [Interacting]
     Dosage: 150 MG, BID

REACTIONS (4)
  - Epistaxis [Unknown]
  - Drug interaction [Unknown]
  - Respiratory distress [Unknown]
  - Drug level increased [Unknown]
